FAERS Safety Report 5572245-9 (Version None)
Quarter: 2007Q4

REPORT INFORMATION
  Report Type: 
  Country: None (occurrence: None)
  Receive Date: 20071221
  Receipt Date: 20071212
  Transmission Date: 20080405
  Serious: Yes (Death)
  Sender: FDA-Public Use
  Company Number: US-PFIZER INC-2007104389

PATIENT

DRUGS (2)
  1. VORICONAZOLE [Suspect]
  2. LINEZOLID [Suspect]

REACTIONS (1)
  - MITOCHONDRIAL TOXICITY [None]
